FAERS Safety Report 6015416-X (Version None)
Quarter: 2008Q4

REPORT INFORMATION
  Report Type: 
  Country: None (occurrence: None)
  Receive Date: 20081218
  Receipt Date: 20081216
  Transmission Date: 20090506
  Serious: Yes (Death)
  Sender: FDA-Public Use
  Company Number: 2008SP015776

PATIENT
  Age: 25 Year
  Sex: Male

DRUGS (4)
  1. PEG-INTRON [Suspect]
     Indication: HEPATITIS C
     Dosage: 100 MCG QW SC
     Route: 058
     Dates: start: 20080731, end: 20080731
  2. REBETOL [Suspect]
     Indication: HEPATITIS C
     Dosage: 1000 MG PO
     Route: 048
     Dates: start: 20080731, end: 20080731
  3. PARACETAMOL [Concomitant]
  4. CITALOPRAM [Concomitant]

REACTIONS (3)
  - ARRHYTHMIA [None]
  - BODY TEMPERATURE INCREASED [None]
  - CARDIO-RESPIRATORY ARREST [None]
